FAERS Safety Report 9204825 (Version 1)
Quarter: 2013Q2

REPORT INFORMATION
  Report Type: Spontaneous
  Country: US (occurrence: US)
  Receive Date: 20130402
  Receipt Date: 20130402
  Transmission Date: 20140414
  Serious: No
  Sender: FDA-Public Use
  Company Number: US-009507513-1304USA000732

PATIENT
  Sex: Female

DRUGS (2)
  1. SINGULAIR [Suspect]
     Dosage: UNK, HS
     Route: 048
     Dates: start: 201201
  2. NASONEX [Concomitant]

REACTIONS (3)
  - Nasal congestion [Not Recovered/Not Resolved]
  - Epistaxis [Not Recovered/Not Resolved]
  - Drug dose omission [Unknown]
